FAERS Safety Report 24356329 (Version 1)
Quarter: 2024Q3

REPORT INFORMATION
  Report Type: Spontaneous
  Country: JO (occurrence: JO)
  Receive Date: 20240924
  Receipt Date: 20240924
  Transmission Date: 20241016
  Serious: Yes (Other)
  Sender: RANBAXY
  Company Number: JO-SUN PHARMACEUTICAL INDUSTRIES LTD-2024R1-469217

PATIENT
  Age: 44 Year
  Sex: Female

DRUGS (1)
  1. PAZOPANIB [Suspect]
     Active Substance: PAZOPANIB
     Indication: Uterine leiomyosarcoma
     Route: 065

REACTIONS (3)
  - Metastases to liver [Unknown]
  - Metastases to lung [Unknown]
  - Disease progression [Unknown]
